FAERS Safety Report 8358687-7 (Version None)
Quarter: 2012Q2

REPORT INFORMATION
  Report Type: 
  Country: None (occurrence: None)
  Receive Date: 20120514
  Receipt Date: 20120507
  Transmission Date: 20120825
  Serious: Yes (Hospitalization)
  Sender: FDA-Public Use
  Company Number: US-RB-040160-12

PATIENT
  Age: 29 Year
  Sex: Female

DRUGS (5)
  1. SUBOXONE [Suspect]
     Indication: DRUG DEPENDENCE
     Dosage: VARIOUS UNKNOWN DOSAGE
     Route: 060
     Dates: start: 20110901, end: 20120503
  2. LITHOBID [Suspect]
     Indication: PRODUCT USED FOR UNKNOWN INDICATION
     Dosage: UNKNOWN DOSAGE DETAILS
     Route: 048
     Dates: start: 20120101, end: 20120401
  3. KLONOPIN [Suspect]
     Indication: PRODUCT USED FOR UNKNOWN INDICATION
     Dosage: UNKNOWN DOSAGE DETAILS
     Route: 048
     Dates: start: 20120101, end: 20120401
  4. SEROQUEL [Concomitant]
     Indication: DEPRESSION
     Dosage: UNKNOWN DOSAGE DETAILS
     Route: 065
  5. REMERON [Concomitant]
     Indication: INSOMNIA
     Dosage: UNKNOWN DOSAGE DETAILS
     Route: 065

REACTIONS (11)
  - CONFUSIONAL STATE [None]
  - REPETITIVE SPEECH [None]
  - VOMITING [None]
  - RESTLESS LEGS SYNDROME [None]
  - WRONG TECHNIQUE IN DRUG USAGE PROCESS [None]
  - AGITATION [None]
  - PAIN [None]
  - INSOMNIA [None]
  - DRUG WITHDRAWAL SYNDROME [None]
  - ABNORMAL BEHAVIOUR [None]
  - DIARRHOEA [None]
